FAERS Safety Report 25737970 (Version 1)
Quarter: 2025Q3

REPORT INFORMATION
  Report Type: Spontaneous
  Country: US (occurrence: US)
  Receive Date: 20250829
  Receipt Date: 20250829
  Transmission Date: 20251020
  Serious: No
  Sender: Norvium Bioscience
  Company Number: US-Norvium Bioscience LLC-080485

PATIENT
  Sex: Female

DRUGS (1)
  1. COSYNTROPIN [Suspect]
     Active Substance: COSYNTROPIN
     Indication: ACTH stimulation test

REACTIONS (1)
  - Hypertension [Unknown]
